FAERS Safety Report 5314981-5 (Version None)
Quarter: 2007Q2

REPORT INFORMATION
  Report Type: 
  Country: None (occurrence: None)
  Receive Date: 20070502
  Receipt Date: 20070424
  Transmission Date: 20071010
  Serious: Yes (Other)
  Sender: FDA-Public Use
  Company Number: CN-GENENTECH-240507

PATIENT
  Sex: Male
  Weight: 80 kg

DRUGS (1)
  1. MABTHERA [Suspect]
     Indication: B-CELL LYMPHOMA
     Dosage: 320 A?G, 1/WEEK
     Route: 042
     Dates: start: 20070315, end: 20070315

REACTIONS (1)
  - COMA [None]
